FAERS Safety Report 6111825-9 (Version None)
Quarter: 2009Q1

REPORT INFORMATION
  Report Type: 
  Country: None (occurrence: None)
  Receive Date: 20090311
  Receipt Date: 20090227
  Transmission Date: 20090719
  Serious: Yes (Life-Threatening, Hospitalization)
  Sender: FDA-Public Use
  Company Number: MX-PFIZER INC-2006082303

PATIENT

DRUGS (3)
  1. SUNITINIB MALATE [Suspect]
     Indication: METASTATIC RENAL CELL CARCINOMA
     Dosage: 50 MG, 1X/DAY
     Route: 048
     Dates: start: 20060531, end: 20060625
  2. OMEPRAZOLE [Concomitant]
     Route: 048
     Dates: start: 20060503
  3. ENSURE [Concomitant]
     Route: 048
     Dates: start: 20060503

REACTIONS (3)
  - HEPATIC FAILURE [None]
  - THROMBOCYTOPENIA [None]
  - UPPER GASTROINTESTINAL HAEMORRHAGE [None]
